FAERS Safety Report 4411180-6 (Version None)
Quarter: 2004Q2

REPORT INFORMATION
  Report Type: 
  Country: None (occurrence: None)
  Receive Date: 20040630
  Receipt Date: 20040513
  Transmission Date: 20050107
  Serious: No
  Sender: FDA-Public Use
  Company Number: 04P-163-0260734-00

PATIENT
  Age: 39 Year
  Sex: Female
  Weight: 54.4316 kg

DRUGS (3)
  1. HUMIRA [Suspect]
     Indication: AUTOIMMUNE DISORDER
     Dosage: 40 MG 1 IN 2 WK SUBCUTANEOUS
     Route: 058
     Dates: start: 20040512
  2. METFORMIN [Suspect]
     Indication: POLYCYSTIC OVARIES
     Dosage: 500 MG 3 IN 1 D, PER ORAL
     Route: 048
     Dates: start: 20040511
  3. FOLGARD [Concomitant]

REACTIONS (4)
  - ANXIETY [None]
  - DIZZINESS [None]
  - INJECTION SITE PAIN [None]
  - MEDICATION ERROR [None]
